FAERS Safety Report 12697797 (Version 1)
Quarter: 2016Q3

REPORT INFORMATION
  Report Type: Spontaneous
  Country: GB (occurrence: GB)
  Receive Date: 20160830
  Receipt Date: 20160830
  Transmission Date: 20161109
  Serious: Yes (Other)
  Sender: FDA-Public Use
  Company Number: GB-AUROBINDO-AUR-APL-2016-10663

PATIENT
  Age: 34 Year
  Sex: Female

DRUGS (3)
  1. CLOTRIMAZOLE. [Suspect]
     Active Substance: CLOTRIMAZOLE
     Indication: VULVOVAGINAL CANDIDIASIS
     Dosage: 500 MG, USED APPROXIMATELY 3 TIMES
     Route: 065
     Dates: start: 201511, end: 201601
  2. CANESTEN [Suspect]
     Active Substance: CLOTRIMAZOLE
     Indication: VULVOVAGINAL CANDIDIASIS
     Dosage: 2 DF, UNK
     Route: 067
     Dates: start: 20160319, end: 20160320
  3. FLUCONAZOLE CAPSULES, HARD 150MG [Suspect]
     Active Substance: FLUCONAZOLE
     Indication: VULVOVAGINAL CANDIDIASIS
     Dosage: 150 MG, UNK
     Route: 065
     Dates: start: 201601, end: 201601

REACTIONS (8)
  - Drug hypersensitivity [Recovered/Resolved]
  - Laryngotracheal oedema [Recovered/Resolved]
  - Chest pain [Recovered/Resolved]
  - Asthenia [Recovered/Resolved]
  - Dyspnoea [Recovered/Resolved]
  - Swollen tongue [Recovered/Resolved]
  - Drug ineffective [Not Recovered/Not Resolved]
  - Product use issue [Unknown]

NARRATIVE: CASE EVENT DATE: 20160319
